FAERS Safety Report 16578046 (Version 11)
Quarter: 2021Q3

REPORT INFORMATION
  Report Type: Spontaneous
  Country: US (occurrence: US)
  Receive Date: 20190716
  Receipt Date: 20210803
  Transmission Date: 20211014
  Serious: Yes (Other)
  Sender: FDA-Public Use
  Company Number: US-PFIZER INC-2019302745

PATIENT
  Age: 67 Year
  Sex: Female

DRUGS (2)
  1. LYRICA [Suspect]
     Active Substance: PREGABALIN
     Indication: NEUROPATHY PERIPHERAL
     Dosage: 125 MG, 3X/DAY (CAPSULE 100 MG AND 25 MG)
     Route: 048
  2. LYRICA [Suspect]
     Active Substance: PREGABALIN
     Dosage: 125 MG, 3X/DAY ( WITH CAPSULE 25MG)
     Route: 048

REACTIONS (2)
  - Cerebrovascular accident [Unknown]
  - Agitation [Unknown]
